FAERS Safety Report 6402464-0 (Version None)
Quarter: 2009Q4

REPORT INFORMATION
  Report Type: 
  Country: None (occurrence: None)
  Receive Date: 20091015
  Receipt Date: 20091008
  Transmission Date: 20100525
  Serious: Yes (Hospitalization, Other)
  Sender: FDA-Public Use
  Company Number: US-ABBOTT-09P-163-0601732-00

PATIENT
  Sex: Female

DRUGS (2)
  1. HUMIRA [Suspect]
     Indication: CROHN'S DISEASE
     Route: 058
     Dates: start: 20070901, end: 20090701
  2. HUMIRA [Suspect]
     Route: 058
     Dates: start: 20090923

REACTIONS (5)
  - ABDOMINAL DISTENSION [None]
  - ADHESION [None]
  - BODY TEMPERATURE [None]
  - PERIRECTAL ABSCESS [None]
  - STAPHYLOCOCCAL INFECTION [None]
